FAERS Safety Report 20232694 (Version 1)
Quarter: 2021Q4

REPORT INFORMATION
  Report Type: Spontaneous
  Country: US (occurrence: US)
  Receive Date: 20211227
  Receipt Date: 20211227
  Transmission Date: 20220303
  Serious: No
  Sender: FDA-Public Use
  Company Number: US-SUNOVION-2021SUN004679

PATIENT
  Sex: Female

DRUGS (1)
  1. LUNESTA [Suspect]
     Active Substance: ESZOPICLONE
     Dosage: 2 MG
     Route: 048

REACTIONS (10)
  - Hangover [Unknown]
  - Burning sensation [Unknown]
  - Fatigue [Unknown]
  - Depressed mood [Unknown]
  - Insomnia [Unknown]
  - Abdominal discomfort [Unknown]
  - Restlessness [Unknown]
  - Agitation [Unknown]
  - Anxiety [Unknown]
  - Tremor [Unknown]
